FAERS Safety Report 6584812-4 (Version None)
Quarter: 2010Q1

REPORT INFORMATION
  Report Type: 
  Country: None (occurrence: None)
  Receive Date: 20100204
  Receipt Date: 20100121
  Transmission Date: 20100710
  Serious: Yes (Death, Life-Threatening, Hospitalization)
  Sender: FDA-Public Use
  Company Number: 005218

PATIENT
  Sex: Male

DRUGS (8)
  1. KEPPRA [Suspect]
     Indication: CONVULSION
     Dosage: (ORAL), (ORAL)
     Route: 048
     Dates: start: 20071101, end: 20081113
  2. KEPPRA [Suspect]
     Indication: CONVULSION
     Dosage: (ORAL), (ORAL)
     Route: 048
     Dates: start: 20081128, end: 20081207
  3. PIPERACILLIN AND TAZOBACTAM [Suspect]
     Dosage: (INTRAVENOUS (NOT OTHERWISE SPECIFIED)
     Route: 042
     Dates: start: 20081113, end: 20081114
  4. CIFLOX /00697201/ (CIFLOX) [Suspect]
     Dosage: (INTRAVENOUS (NOT OTHERWISE SPECIFIED)), (INTRAVENOUS (NOT OTHERWISE SPECIFIED))
     Route: 042
     Dates: start: 20081113, end: 20081124
  5. CIFLOX /00697201/ (CIFLOX) [Suspect]
     Dosage: (INTRAVENOUS (NOT OTHERWISE SPECIFIED)), (INTRAVENOUS (NOT OTHERWISE SPECIFIED))
     Route: 042
     Dates: start: 20081202, end: 20081206
  6. ROCEPHIN [Suspect]
     Dosage: (INTRAVENOUS (NOT OTHERWISE SPECIFIED))
     Route: 042
     Dates: start: 20081115, end: 20081124
  7. TRILEPTAL [Suspect]
     Dosage: (600 MG INTRAVENOUS (NOT OTHERWISE SPECIFIED))
     Route: 042
     Dates: start: 20081211, end: 20081217
  8. SIMVASTATIN [Concomitant]

REACTIONS (15)
  - ASCITES [None]
  - BLOOD DISORDER [None]
  - CIRCULATORY COLLAPSE [None]
  - CONVULSION [None]
  - EOSINOPHIL COUNT INCREASED [None]
  - HAEMATURIA [None]
  - HEPATIC FAILURE [None]
  - LYMPHADENOPATHY [None]
  - MULTI-ORGAN FAILURE [None]
  - PLEURAL EFFUSION [None]
  - RENAL FAILURE [None]
  - RESPIRATORY DISTRESS [None]
  - SUPRAVENTRICULAR TACHYCARDIA [None]
  - TOXIC EPIDERMAL NECROLYSIS [None]
  - TOXIC SKIN ERUPTION [None]
